FAERS Safety Report 9933015 (Version 1)
Quarter: 2014Q1

REPORT INFORMATION
  Report Type: Spontaneous
  Country: US (occurrence: US)
  Receive Date: 20140228
  Receipt Date: 20140228
  Transmission Date: 20141002
  Serious: No
  Sender: FDA-Public Use
  Company Number: US-GLAXOSMITHKLINE-A1043910A

PATIENT
  Age: 21 Year
  Sex: Female

DRUGS (2)
  1. LAMICTAL [Suspect]
     Indication: EPILEPSY
     Route: 048
     Dates: start: 2006
  2. SPRINTEC [Concomitant]

REACTIONS (6)
  - Urticaria [Not Recovered/Not Resolved]
  - Pharyngeal oedema [Unknown]
  - Rash [Unknown]
  - Rash [Unknown]
  - Rash pruritic [Unknown]
  - Product quality issue [Unknown]
